FAERS Safety Report 7557993-3 (Version None)
Quarter: 2011Q2

REPORT INFORMATION
  Report Type: 
  Country: None (occurrence: None)
  Receive Date: 20110613
  Receipt Date: 20110603
  Transmission Date: 20111010
  Serious: Yes (Hospitalization)
  Sender: FDA-Public Use
  Company Number: 2011SP025786

PATIENT
  Age: 14 Year
  Sex: Male

DRUGS (8)
  1. ATROPINE SULFATE [Suspect]
     Indication: PRODUCT USED FOR UNKNOWN INDICATION
     Dosage: 0.75 MG, ONCE, IV
     Route: 042
     Dates: start: 20110520, end: 20110520
  2. ACETAMINOPHEN [Suspect]
     Indication: ANALGESIC THERAPY
     Dosage: 250 MG, ONCE, IV
     Route: 042
     Dates: start: 20110520, end: 20110520
  3. INTRASTIGMINA (NEOSTIGMINE METILSULFATE) [Suspect]
     Indication: NEUROMUSCULAR BLOCKADE REVERSAL
     Dosage: 1 MG, ONCE, IV
     Route: 042
     Dates: start: 20110520, end: 20110520
  4. CEFAZOLIN [Concomitant]
  5. NORCURON [Suspect]
     Indication: ANAESTHESIA PROCEDURE
     Dosage: 6 MG, ONCE, IV
     Route: 042
     Dates: start: 20110520, end: 20110520
  6. FENTANYL CITRATE [Suspect]
     Indication: ANAESTHESIA PROCEDURE
     Dosage: 2 MG, ONCE, IV
     Route: 042
     Dates: start: 20110520, end: 20110520
  7. PROPOFOL [Suspect]
     Indication: ANAESTHESIA PROCEDURE
     Dosage: 100 MG, ONCE, IV
     Route: 042
     Dates: start: 20110520, end: 20110520
  8. OMEPRAZOLE [Suspect]
     Indication: PROPHYLAXIS AGAINST GASTROINTESTINAL ULCER
     Dosage: 20 MG, ONCE, IV
     Route: 042
     Dates: start: 20110520, end: 20110520

REACTIONS (3)
  - LIP OEDEMA [None]
  - RASH [None]
  - POST PROCEDURAL COMPLICATION [None]
